FAERS Safety Report 19446683 (Version 1)
Quarter: 2021Q2

REPORT INFORMATION
  Report Type: Spontaneous
  Country: US (occurrence: US)
  Receive Date: 20210620
  Receipt Date: 20210620
  Transmission Date: 20210717
  Serious: Yes (Other)
  Sender: FDA-Public Use
  Company Number: None

PATIENT
  Age: 35 Year
  Sex: Female
  Weight: 49.5 kg

DRUGS (2)
  1. SELENIUM [Concomitant]
     Active Substance: SELENIUM
  2. TEPEZZA [Suspect]
     Active Substance: TEPROTUMUMAB-TRBW
     Indication: ENDOCRINE OPHTHALMOPATHY
     Dosage: ?          QUANTITY:1 INJECTION(S);OTHER FREQUENCY:EVERY THREE WEEKS;?
     Route: 042
     Dates: start: 20201211, end: 20210122

REACTIONS (10)
  - Loss of personal independence in daily activities [None]
  - Eyelid rash [None]
  - Facial wasting [None]
  - Eye swelling [None]
  - Eye pain [None]
  - Deformity [None]
  - Periorbital fat atrophy [None]
  - Eyelid retraction [None]
  - Photophobia [None]
  - Condition aggravated [None]

NARRATIVE: CASE EVENT DATE: 20210122
